FAERS Safety Report 8419620-2 (Version None)
Quarter: 2012Q2

REPORT INFORMATION
  Report Type: 
  Country: None (occurrence: None)
  Receive Date: 20120607
  Receipt Date: 20060306
  Transmission Date: 20120825
  Serious: Yes (Death, Other)
  Sender: FDA-Public Use
  Company Number: PHFR2006GB02024

PATIENT

DRUGS (10)
  1. DEXAMETHASONE [Concomitant]
     Indication: APPETITE DISORDER
     Dosage: UNK UKN, UNK
     Route: 048
     Dates: end: 20060601
  2. AUGMENTIN '125' [Concomitant]
     Indication: LOWER RESPIRATORY TRACT INFECTION
     Dosage: UNK UKN, UNK
     Route: 048
  3. FERROUS SULFATE TAB [Concomitant]
     Indication: ANAEMIA
     Dosage: 200 MG, TID
     Route: 048
  4. DARBEPOETIN ALFA [Concomitant]
     Indication: ANAEMIA
     Dosage: 260 MG, QW
     Route: 058
  5. LANSOPRAZOLE [Concomitant]
     Indication: GASTROINTESTINAL DISORDER
     Dosage: 30 MG, QD
     Route: 048
  6. FOLIC ACID [Concomitant]
     Dosage: 5 MG, BID
     Route: 048
  7. GLEEVEC [Suspect]
     Indication: GASTROINTESTINAL STROMAL TUMOUR
     Dosage: 400 MG, DAILY
     Route: 048
     Dates: start: 20040819, end: 20060307
  8. GLEEVEC [Suspect]
     Dosage: 800 MG, DAILY
     Route: 048
     Dates: start: 20060308, end: 20060606
  9. ATORVASTATIN CALCIUM [Concomitant]
     Indication: BLOOD CHOLESTEROL
     Dosage: 20MG NOCTE
     Route: 048
  10. ACETAMINOPHEN [Concomitant]
     Indication: ANALGESIC THERAPY
     Dosage: 1 G, QD
     Route: 048

REACTIONS (4)
  - NEOPLASM PROGRESSION [None]
  - ANAEMIA [None]
  - NEOPLASM MALIGNANT [None]
  - GASTROINTESTINAL HAEMORRHAGE [None]
